FAERS Safety Report 6251247-3 (Version None)
Quarter: 2009Q2

REPORT INFORMATION
  Report Type: 
  Country: None (occurrence: None)
  Receive Date: 20090626
  Receipt Date: 20090617
  Transmission Date: 20091009
  Serious: Yes (Hospitalization)
  Sender: FDA-Public Use
  Company Number: GXKR2009GB07046

PATIENT
  Age: 49 Year
  Sex: Male

DRUGS (6)
  1. WARFARIN SODIUM [Suspect]
     Indication: CONTUSION
  2. JANUVIA [Suspect]
     Dosage: 100 MG, QD, ORAL
     Route: 048
     Dates: start: 20090526
  3. INSULIN (INSULIN) [Concomitant]
  4. METFORMIN HCL [Concomitant]
  5. SIBUTRAMINE HYDROCHLORIDE (SIBUTRAMINE HYDROCHLORIDE) [Concomitant]
  6. VENLAFAXINE HCL [Concomitant]

REACTIONS (4)
  - DRUG INTERACTION [None]
  - EPISTAXIS [None]
  - INCREASED TENDENCY TO BRUISE [None]
  - INTERNATIONAL NORMALISED RATIO ABNORMAL [None]
